FAERS Safety Report 23985305 (Version 1)
Quarter: 2024Q2

REPORT INFORMATION
  Report Type: Spontaneous
  Country: US (occurrence: None)
  Receive Date: 20240617
  Receipt Date: 20240617
  Transmission Date: 20240716
  Serious: Yes (Hospitalization)
  Sender: FDA-Public Use
  Company Number: None

PATIENT
  Age: 86 Year
  Sex: Male

DRUGS (1)
  1. ERLEADA [Suspect]
     Active Substance: APALUTAMIDE
     Indication: Prostate cancer
     Dosage: 240MG DAILY ORAL
     Route: 048
     Dates: start: 202402

REACTIONS (4)
  - Urinary tract infection [None]
  - Pyrexia [None]
  - Dizziness [None]
  - Calculus bladder [None]

NARRATIVE: CASE EVENT DATE: 20240508
